FAERS Safety Report 5476698-6 (Version None)
Quarter: 2007Q4

REPORT INFORMATION
  Report Type: 
  Country: None (occurrence: None)
  Receive Date: 20071004
  Receipt Date: 20070629
  Transmission Date: 20080405
  Serious: No
  Sender: FDA-Public Use
  Company Number: A0658958A

PATIENT
  Age: 70 Year
  Sex: Male
  Weight: 95.5 kg

DRUGS (1)
  1. ADVAIR DISKUS 100/50 [Suspect]
     Indication: DRUG USE FOR UNKNOWN INDICATION
     Dosage: 1PUFF VARIABLE DOSE
     Route: 055
     Dates: start: 20060901, end: 20070617

REACTIONS (1)
  - GLOSSODYNIA [None]
